FAERS Safety Report 24015823 (Version 1)
Quarter: 2024Q2

REPORT INFORMATION
  Report Type: Spontaneous
  Country: TR (occurrence: TR)
  Receive Date: 20240626
  Receipt Date: 20240626
  Transmission Date: 20240715
  Serious: Yes (Other)
  Sender: FDA-Public Use
  Company Number: TR-LEADINGPHARMA-TR-2024LEALIT00240

PATIENT
  Age: 21 Year
  Sex: Female

DRUGS (3)
  1. LORAZEPAM [Suspect]
     Active Substance: LORAZEPAM
     Indication: Bipolar disorder
     Route: 065
  2. VALPROIC ACID [Suspect]
     Active Substance: VALPROIC ACID
     Indication: Schizophrenia
     Route: 065
  3. LITHIUM [Concomitant]
     Active Substance: LITHIUM
     Indication: Mania
     Route: 065

REACTIONS (2)
  - Hyperammonaemic encephalopathy [Recovered/Resolved]
  - Drug interaction [Unknown]
